FAERS Safety Report 7859343-1 (Version None)
Quarter: 2011Q4

REPORT INFORMATION
  Report Type: 
  Country: None (occurrence: None)
  Receive Date: 20111026
  Receipt Date: 20111026
  Transmission Date: 20120403
  Serious: Yes (Hospitalization)
  Sender: FDA-Public Use
  Company Number: None

PATIENT
  Sex: Female
  Weight: 41 kg

DRUGS (11)
  1. CISPLATIN [Suspect]
     Dosage: 65 MG
     Dates: end: 20110928
  2. TAXOL [Suspect]
     Dosage: 228 MG
     Dates: end: 20110928
  3. COLACE [Concomitant]
  4. PEPTO-BISMAL [Concomitant]
  5. AMBIEN [Concomitant]
  6. PROZAC [Concomitant]
  7. TOPROL-XL [Concomitant]
  8. BENADRYL [Concomitant]
  9. DILAUDID [Concomitant]
  10. FENTANYL-100 [Concomitant]
  11. ZOFRAN [Concomitant]

REACTIONS (7)
  - PAIN [None]
  - NEOPLASM PROGRESSION [None]
  - FLANK PAIN [None]
  - HAEMATOCRIT DECREASED [None]
  - HAEMOGLOBIN DECREASED [None]
  - PSEUDOMONAS TEST POSITIVE [None]
  - CERVIX CANCER METASTATIC [None]
